FAERS Safety Report 7212023-8 (Version None)
Quarter: 2011Q1

REPORT INFORMATION
  Report Type: 
  Country: None (occurrence: None)
  Receive Date: 20110106
  Receipt Date: 20101228
  Transmission Date: 20110831
  Serious: Yes (Disabling, Other)
  Sender: FDA-Public Use
  Company Number: CO-AMGEN-COLCT2010002737

PATIENT

DRUGS (4)
  1. ENALAPRIL [Concomitant]
     Indication: HYPERTENSION
     Dates: start: 20100101
  2. ETANERCEPT [Suspect]
     Dosage: UNK
     Dates: start: 20100101, end: 20110101
  3. ETANERCEPT [Suspect]
     Indication: RHEUMATOID ARTHRITIS
     Dosage: 25 MG, 2 TIMES/WK
     Route: 058
     Dates: end: 20100301
  4. LOSARTAN POTASSIUM [Concomitant]
     Indication: HYPERTENSION
     Dates: start: 20070101

REACTIONS (4)
  - DEVICE RELATED INFECTION [None]
  - ASTHMA [None]
  - DEVICE FAILURE [None]
  - KNEE ARTHROPLASTY [None]
